FAERS Safety Report 6443248-7 (Version None)
Quarter: 2009Q4

REPORT INFORMATION
  Report Type: 
  Country: None (occurrence: None)
  Receive Date: 20091113
  Receipt Date: 20091104
  Transmission Date: 20100525
  Serious: Yes (Other)
  Sender: FDA-Public Use
  Company Number: 2009SP029254

PATIENT
  Age: 32 Year
  Sex: Female
  Weight: 57.6068 kg

DRUGS (6)
  1. IMPLANON [Suspect]
     Indication: DRUG USE FOR UNKNOWN INDICATION
     Dosage: 1 DF;
     Dates: start: 20081001
  2. CARBAMAZEPINE [Suspect]
     Indication: CONVULSION
  3. CARBAMAZEPINE [Concomitant]
  4. TEGRETOL [Concomitant]
  5. HYDROCHLOROTHIAZIDE [Concomitant]
  6. FLUOXETINE [Concomitant]

REACTIONS (2)
  - ABORTION INCOMPLETE [None]
  - DRUG EXPOSURE DURING PREGNANCY [None]
